FAERS Safety Report 5066204-2 (Version None)
Quarter: 2006Q3

REPORT INFORMATION
  Report Type: 
  Country: None (occurrence: None)
  Receive Date: 20060801
  Receipt Date: 20060720
  Transmission Date: 20061208
  Serious: Yes (Hospitalization)
  Sender: FDA-Public Use
  Company Number: AT-JNJFOC-20060704002

PATIENT
  Age: 26 Year
  Sex: Female
  Weight: 70 kg

DRUGS (2)
  1. REMICADE [Suspect]
     Indication: CROHN'S DISEASE
     Route: 042
  2. PREDNISOLONE [Concomitant]
     Dosage: DESCENDING UP FROM 2MG FOR 1.5 MONTHS
     Route: 065

REACTIONS (3)
  - C-REACTIVE PROTEIN INCREASED [None]
  - CELLULITIS [None]
  - LEUKOCYTOSIS [None]
